FAERS Safety Report 4544177-6 (Version None)
Quarter: 2005Q1

REPORT INFORMATION
  Report Type: 
  Country: None (occurrence: None)
  Receive Date: 20050104
  Receipt Date: 20041226
  Transmission Date: 20050727
  Serious: Yes (Other)
  Sender: FDA-Public Use
  Company Number: PHEH2004US13730

PATIENT

DRUGS (1)
  1. MIACALCIN [Suspect]
     Route: 030

REACTIONS (2)
  - MEDICATION ERROR [None]
  - TACHYCARDIA [None]
